FAERS Safety Report 7371152 (Version 2)
Quarter: 2014Q2

REPORT INFORMATION
  Report Type: Spontaneous
  Country: None (occurrence: None)
  Receive Date: 20100420
  Receipt Date: 20140416
  Transmission Date: 20141212
  Serious: Yes (Hospitalization)
  Sender: FDA-Public Use
  Company Number: AUR-APL-2010-00996

PATIENT
  Age: 80 Year
  Sex: Female

DRUGS (4)
  1. LISINOPRIL [Suspect]
     Indication: HYPERTENSION
     Dosage: 2.5MG, DAILY, ORAL
     Route: 048
     Dates: start: 20020718, end: 20100315
  2. BENDROFLUMETHIAZIDE [Suspect]
     Indication: HYPERTENSION
     Dosage: 2.5MG, DAILY, ORAL
     Route: 048
     Dates: start: 19991108, end: 20100315
  3. CO-CODAMOL [Concomitant]
  4. VISCOTEARS [Concomitant]

REACTIONS (4)
  - Diarrhoea [None]
  - Hypophagia [None]
  - Renal failure acute [None]
  - Vomiting [None]
